FAERS Safety Report 9618013 (Version 2)
Quarter: 2014Q1

REPORT INFORMATION
  Report Type: Spontaneous
  Country: BR (occurrence: BR)
  Receive Date: 20131011
  Receipt Date: 20140203
  Transmission Date: 20141002
  Serious: Yes (Hospitalization, Other)
  Sender: FDA-Public Use
  Company Number: BR-ASTRAZENECA-2013SE74155

PATIENT
  Age: 59 Year
  Sex: Male
  Weight: 90 kg

DRUGS (6)
  1. CAPRELSA [Suspect]
     Indication: THYROID CANCER
     Route: 048
     Dates: start: 201309, end: 201310
  2. CAPRELSA [Suspect]
     Indication: THYROID CANCER
     Dosage: 1/2 TABLET DAILY
     Route: 048
     Dates: start: 201310, end: 201311
  3. CAPRELSA [Suspect]
     Indication: THYROID CANCER
     Route: 048
     Dates: start: 201311, end: 201401
  4. DIOVAN [Concomitant]
     Indication: HYPERTENSION
     Route: 048
  5. PURAN T4 [Concomitant]
     Indication: HORMONE REPLACEMENT THERAPY
     Route: 048
  6. PANTOPRAZOLE [Concomitant]
     Indication: ABDOMINAL DISCOMFORT
     Route: 048

REACTIONS (7)
  - Syncope [Recovered/Resolved]
  - Joint dislocation [Recovered/Resolved]
  - Blood creatine phosphokinase increased [Recovered/Resolved]
  - Dizziness [Recovered/Resolved]
  - Blood calcitonin increased [Recovered/Resolved]
  - Rash [Not Recovered/Not Resolved]
  - Off label use [Recovered/Resolved]
